FAERS Safety Report 8875979 (Version 1)
Quarter: 2012Q4

REPORT INFORMATION
  Report Type: 
  Country: GB (occurrence: GB)
  Receive Date: 20121030
  Receipt Date: 20121030
  Transmission Date: 20130627
  Serious: Yes (Other)
  Sender: FDA-Public Use
  Company Number: PHHY2012GB095307

PATIENT
  Age: 68 Year
  Sex: Male

DRUGS (4)
  1. FLUOROURACIL [Suspect]
     Indication: COLORECTAL CANCER METASTATIC
  2. IRINOTECAN [Suspect]
     Indication: COLORECTAL CANCER METASTATIC
  3. FOLINIC ACID [Suspect]
     Indication: COLORECTAL CANCER METASTATIC
  4. ELOXATIN [Suspect]
     Indication: COLORECTAL CANCER METASTATIC
     Dates: start: 20080910, end: 20090303

REACTIONS (3)
  - Urinary tract infection [Recovered/Resolved]
  - Neuropathy peripheral [Recovered/Resolved]
  - Fatigue [Recovered/Resolved]
